FAERS Safety Report 10539333 (Version 2)
Quarter: 2015Q1

REPORT INFORMATION
  Report Type: Other
  Country: US (occurrence: US)
  Receive Date: 20141023
  Receipt Date: 20150113
  Transmission Date: 20150720
  Serious: Yes (Hospitalization, Other)
  Sender: FDA-Public Use
  Company Number: US-GSKPPD-2014GSK013999

PATIENT
  Age: 70 Year
  Sex: Male

DRUGS (5)
  1. AVANDAMET [Suspect]
     Active Substance: METFORMIN HYDROCHLORIDE\ROSIGLITAZONE MALEATE
     Indication: DIABETES MELLITUS
     Dosage: DATES OF AVANDAMET USE COULD NOT BE CONFIRMED IN RECORDS REVIEWED.
  2. AVANDIA [Suspect]
     Active Substance: ROSIGLITAZONE MALEATE
     Indication: DIABETES MELLITUS
     Dosage: DATES OF AVANDIA USE COULD NOT BE CONFIRMED IN RECORDS REVIEWED.
     Route: 048
  3. ASPIRIN. [Concomitant]
     Active Substance: ASPIRIN
  4. PLAVIX [Concomitant]
     Active Substance: CLOPIDOGREL BISULFATE
  5. LISINOPRIL. [Concomitant]
     Active Substance: LISINOPRIL

REACTIONS (2)
  - Ischaemic stroke [Recovered/Resolved]
  - Coronary arterial stent insertion [Unknown]

NARRATIVE: CASE EVENT DATE: 20081001
